FAERS Safety Report 10899999 (Version 1)
Quarter: 2015Q1

REPORT INFORMATION
  Report Type: Report from Study
  Country: ZA (occurrence: ZA)
  Receive Date: 20150310
  Receipt Date: 20150310
  Transmission Date: 20150721
  Serious: Yes (Death)
  Sender: FDA-Public Use
  Company Number: ZA-ROCHE-1549630

PATIENT
  Age: 74 Year
  Sex: Female

DRUGS (3)
  1. MIRCERA [Suspect]
     Active Substance: PEGZEREPOETIN ALFA
     Indication: NEPHROGENIC ANAEMIA
     Route: 058
     Dates: start: 20150114
  2. MIRCERA [Suspect]
     Active Substance: PEGZEREPOETIN ALFA
     Route: 058
     Dates: start: 20130802, end: 20140129
  3. MIRCERA [Suspect]
     Active Substance: PEGZEREPOETIN ALFA
     Route: 058
     Dates: start: 20140129, end: 20150114

REACTIONS (1)
  - Death [Fatal]

NARRATIVE: CASE EVENT DATE: 20150304
